FAERS Safety Report 7767389-7 (Version None)
Quarter: 2011Q3

REPORT INFORMATION
  Report Type: 
  Country: None (occurrence: None)
  Receive Date: 20110922
  Receipt Date: 20110516
  Transmission Date: 20111222
  Serious: No
  Sender: FDA-Public Use
  Company Number: US-ASTRAZENECA-2009UW21047

PATIENT
  Age: 36 Year
  Sex: Female
  Weight: 122.5 kg

DRUGS (5)
  1. SEROQUEL [Suspect]
     Route: 048
     Dates: start: 20080429
  2. SEROQUEL [Suspect]
     Indication: BIPOLAR DISORDER
     Route: 048
     Dates: start: 20080101, end: 20090101
  3. PAROXETINE HYDROCHLORIDE [Concomitant]
     Dates: start: 20080429
  4. ZYPREXA [Concomitant]
     Dates: start: 20080326
  5. ABILIFY [Concomitant]
     Dates: start: 20090401

REACTIONS (3)
  - OBESITY [None]
  - TYPE 2 DIABETES MELLITUS [None]
  - BLOOD TRIGLYCERIDES INCREASED [None]
